FAERS Safety Report 6863762-X (Version None)
Quarter: 2010Q3

REPORT INFORMATION
  Report Type: 
  Country: None (occurrence: None)
  Receive Date: 20100721
  Receipt Date: 20080314
  Transmission Date: 20110219
  Serious: No
  Sender: FDA-Public Use
  Company Number: US-PFIZER INC-2008021927

PATIENT
  Sex: Female
  Weight: 83.5 kg

DRUGS (4)
  1. CHANTIX [Suspect]
     Indication: SMOKING CESSATION THERAPY
     Route: 048
     Dates: start: 20080301
  2. XANAX [Suspect]
     Indication: ANXIETY
  3. EFFEXOR [Concomitant]
     Indication: ANXIETY
     Route: 048
  4. ZYPREXA [Concomitant]
     Indication: ANXIETY
     Route: 048

REACTIONS (1)
  - ANXIETY [None]
